FAERS Safety Report 11270659 (Version 1)
Quarter: 2015Q3

REPORT INFORMATION
  Report Type: Spontaneous
  Country: US (occurrence: US)
  Receive Date: 20150714
  Receipt Date: 20150714
  Transmission Date: 20151125
  Serious: No
  Sender: FDA-Public Use
  Company Number: US-PFIZER INC-2015229514

PATIENT
  Sex: Female

DRUGS (1)
  1. DUAVEE [Suspect]
     Active Substance: BAZEDOXIFENE ACETATE\ESTROGENS, CONJUGATED
     Indication: POSTMENOPAUSE
     Dosage: UNK

REACTIONS (5)
  - Anxiety [Unknown]
  - Panic reaction [Unknown]
  - Heart rate increased [Unknown]
  - Palpitations [Unknown]
  - Crying [Unknown]
